FAERS Safety Report 8462716-X (Version None)
Quarter: 2012Q2

REPORT INFORMATION
  Report Type: 
  Country: None (occurrence: None)
  Receive Date: 20120625
  Receipt Date: 20120621
  Transmission Date: 20120825
  Serious: Yes (Other)
  Sender: FDA-Public Use
  Company Number: PL-ROCHE-1080903

PATIENT
  Age: 61 Year
  Sex: Female
  Weight: 56 kg

DRUGS (1)
  1. CELLCEPT [Suspect]
     Indication: PRODUCT USED FOR UNKNOWN INDICATION

REACTIONS (1)
  - BONE MARROW OEDEMA [None]
